FAERS Safety Report 7500734-6 (Version None)
Quarter: 2011Q2

REPORT INFORMATION
  Report Type: 
  Country: None (occurrence: None)
  Receive Date: 20110524
  Receipt Date: 20110512
  Transmission Date: 20111010
  Serious: Yes (Death, Hospitalization, Other)
  Sender: FDA-Public Use
  Company Number: PHHY2011CA41666

PATIENT
  Age: 51 Year
  Sex: Male

DRUGS (2)
  1. CLOZAPINE [Suspect]
  2. ESOMEPRAZOLE MAGNESIUM [Concomitant]

REACTIONS (8)
  - OESOPHAGEAL ULCER HAEMORRHAGE [None]
  - OESOPHAGEAL CANDIDIASIS [None]
  - HEPATITIS [None]
  - OESOPHAGEAL ULCER [None]
  - CARDIAC ARREST [None]
  - HEPATIC ENCEPHALOPATHY [None]
  - JAUNDICE [None]
  - MALAISE [None]
